FAERS Safety Report 18639177 (Version 1)
Quarter: 2020Q4

REPORT INFORMATION
  Report Type: Other
  Country: US (occurrence: US)
  Receive Date: 20201218
  Receipt Date: 20201218
  Transmission Date: 20210114
  Serious: Yes (Other)
  Sender: FDA-Public Use
  Company Number: US-ROCHE-2734391

PATIENT
  Sex: Female

DRUGS (2)
  1. XELODA [Suspect]
     Active Substance: CAPECITABINE
     Indication: COLON CANCER
     Dosage: TAKE 3 TABLET(S) BY MOUTH TWICE A DAY WITH MEALS 2 WEEK(S) ON, 1 WEEK(S) OFF
     Route: 048
  2. XELODA [Suspect]
     Active Substance: CAPECITABINE
     Dosage: TAKE 2 TABLET(S) BY MOUTH TWICE A DAY WITH MEALS WITH 1 OTHER PRESCRIPTION FOR 14 DAYS, 1800 MG TOTA
     Route: 048
     Dates: start: 20201007

REACTIONS (1)
  - Gastrointestinal necrosis [Unknown]
